FAERS Safety Report 9554711 (Version 2)
Quarter: 2013Q4

REPORT INFORMATION
  Report Type: Spontaneous
  Country: US (occurrence: US)
  Receive Date: 20130926
  Receipt Date: 20131003
  Transmission Date: 20140711
  Serious: Yes (Hospitalization)
  Sender: FDA-Public Use
  Company Number: US-AMGEN-USASP2013066963

PATIENT
  Age: 61 Year
  Sex: Female

DRUGS (6)
  1. ENBREL [Suspect]
     Indication: ARTHRITIS
     Dosage: 25 MG, 2 TIMES/WK
     Route: 065
  2. ENBREL [Suspect]
     Indication: CROHN^S DISEASE
  3. IMURAN                             /00001501/ [Concomitant]
     Dosage: UNK
  4. SULFASALAZINE [Concomitant]
     Dosage: UNK
  5. PLAQUENIL                          /00072602/ [Concomitant]
     Dosage: UNK
  6. PREDNISONE [Concomitant]
     Dosage: UNK

REACTIONS (8)
  - Post procedural infection [Recovered/Resolved]
  - Pneumonia [Recovered/Resolved]
  - Localised infection [Recovered/Resolved]
  - Corneal transplant [Recovered/Resolved]
  - Nephrolithiasis [Not Recovered/Not Resolved]
  - Dehydration [Recovered/Resolved]
  - Blood potassium decreased [Recovered/Resolved]
  - Electrolyte imbalance [Recovered/Resolved]
